FAERS Safety Report 9002169 (Version 1)
Quarter: 2013Q1

REPORT INFORMATION
  Report Type: Spontaneous
  Country: US (occurrence: None)
  Receive Date: 20130103
  Receipt Date: 20130103
  Transmission Date: 20140127
  Serious: Yes (Other)
  Sender: FDA-Public Use
  Company Number: None

PATIENT
  Age: 54 Year
  Sex: Female

DRUGS (2)
  1. RIBAVIRIN [Suspect]
     Dosage: 400MG BID PO
     Route: 048
     Dates: start: 20120314
  2. PEGASYS [Suspect]
     Dosage: 135MCG  WEEKLY  SUBQ
     Route: 058
     Dates: start: 20120314

REACTIONS (1)
  - Hypersensitivity [None]
